FAERS Safety Report 7107213-9 (Version None)
Quarter: 2010Q4

REPORT INFORMATION
  Report Type: 
  Country: None (occurrence: None)
  Receive Date: 20101116
  Receipt Date: 20101015
  Transmission Date: 20110411
  Serious: No
  Sender: FDA-Public Use
  Company Number: US-ABBOTT-10P-163-0679017-00

PATIENT
  Sex: Female
  Weight: 68.1 kg

DRUGS (2)
  1. SIMCOR [Suspect]
     Indication: BLOOD CHOLESTEROL INCREASED
     Dosage: 2000/40 MG
     Dates: start: 20100401
  2. MICARDIS [Concomitant]
     Indication: HYPERTENSION

REACTIONS (2)
  - BLOOD TRIGLYCERIDES INCREASED [None]
  - PRURITUS [None]
